FAERS Safety Report 18676115 (Version 1)
Quarter: 2020Q4

REPORT INFORMATION
  Report Type: Spontaneous
  Country: US (occurrence: US)
  Receive Date: 20201228
  Receipt Date: 20201228
  Transmission Date: 20210114
  Serious: Yes (Hospitalization)
  Sender: FDA-Public Use
  Company Number: None

PATIENT
  Age: 63 Year
  Sex: Male

DRUGS (7)
  1. MERCAPTOPURINE. [Suspect]
     Active Substance: MERCAPTOPURINE
     Indication: COLITIS ULCERATIVE
     Route: 048
     Dates: start: 20171011
  2. LANTUS [Concomitant]
     Active Substance: INSULIN GLARGINE
  3. PANTOPRAZOLE [Concomitant]
     Active Substance: PANTOPRAZOLE
  4. GLYBURIDE. [Concomitant]
     Active Substance: GLYBURIDE
  5. MERCAPTOPURINE. [Suspect]
     Active Substance: MERCAPTOPURINE
     Indication: COLITIS
     Route: 048
     Dates: start: 20171011
  6. MESALAMINE. [Concomitant]
     Active Substance: MESALAMINE
  7. MERCAPTOPUR [Concomitant]

REACTIONS (2)
  - Dehydration [None]
  - Internal haemorrhage [None]
